FAERS Safety Report 13695386 (Version 1)
Quarter: 2017Q2

REPORT INFORMATION
  Report Type: Spontaneous
  Country: US (occurrence: US)
  Receive Date: 20170627
  Receipt Date: 20170627
  Transmission Date: 20170830
  Serious: No
  Sender: FDA-Public Use
  Company Number: US-ALLERGAN-1680561US

PATIENT
  Age: 59 Year
  Sex: Female

DRUGS (1)
  1. PROGESTERONE UNK [Suspect]
     Active Substance: PROGESTERONE
     Indication: MENOPAUSE
     Route: 048

REACTIONS (1)
  - Therapeutic response decreased [Unknown]
